FAERS Safety Report 24235927 (Version 1)
Quarter: 2024Q3

REPORT INFORMATION
  Report Type: Spontaneous
  Country: CA (occurrence: CA)
  Receive Date: 20240822
  Receipt Date: 20240822
  Transmission Date: 20241017
  Serious: Yes (Other)
  Sender: CELLTRION
  Company Number: CA-CELLTRION INC.-2021CA019602

PATIENT

DRUGS (3)
  1. TRUXIMA [Suspect]
     Active Substance: RITUXIMAB-ABBS
     Indication: Pemphigus
     Dosage: 1000 MG, DAY1 AND 15
     Route: 042
     Dates: start: 20210527
  2. TRUXIMA [Suspect]
     Active Substance: RITUXIMAB-ABBS
     Indication: Rheumatoid arthritis
     Dosage: 1000 MG
     Route: 042
     Dates: start: 20210527
  3. TRUXIMA [Suspect]
     Active Substance: RITUXIMAB-ABBS
     Dosage: 1000 MG, SIX MONTH INTERVAL LAST AUGUST.
     Route: 042
     Dates: start: 20220812

REACTIONS (13)
  - Pemphigus [Unknown]
  - Joint swelling [Unknown]
  - Epistaxis [Unknown]
  - Gingival pain [Unknown]
  - Chapped lips [Unknown]
  - Mobility decreased [Unknown]
  - Fatigue [Unknown]
  - Pain [Unknown]
  - Musculoskeletal pain [Unknown]
  - Swelling face [Unknown]
  - Mouth ulceration [Unknown]
  - Nasopharyngitis [Unknown]
  - Influenza [Unknown]
